FAERS Safety Report 16973498 (Version 2)
Quarter: 2019Q4

REPORT INFORMATION
  Report Type: Spontaneous
  Country: NL (occurrence: NL)
  Receive Date: 20191030
  Receipt Date: 20191105
  Transmission Date: 20200122
  Serious: Yes (Other)
  Sender: FDA-Public Use
  Company Number: NL-TEVA-2019-NL-1128374

PATIENT
  Sex: Male
  Weight: 68 kg

DRUGS (1)
  1. ATORVASTATINE TABLET, 40 MG (MILLIGRAM) [Suspect]
     Active Substance: ATORVASTATIN
     Indication: BLOOD CHOLESTEROL
     Dosage: 40 MILLIGRAM, 1 TIME PER DAY
     Dates: start: 20190618, end: 20190906

REACTIONS (1)
  - Multiple sclerosis [Recovering/Resolving]
